FAERS Safety Report 5237562-0 (Version None)
Quarter: 2007Q1

REPORT INFORMATION
  Report Type: 
  Country: None (occurrence: None)
  Receive Date: 20070213
  Receipt Date: 20070207
  Transmission Date: 20070707
  Serious: Yes (Other)
  Sender: FDA-Public Use
  Company Number: CH-PFIZER INC-2007008990

PATIENT
  Sex: Female

DRUGS (2)
  1. VIAGRA [Suspect]
     Indication: PULMONARY HYPERTENSION
     Route: 048
  2. MARCUMAR [Interacting]
     Indication: ANTICOAGULANT THERAPY
     Dosage: FREQ:DAILY : EVERY DAY
     Route: 048

REACTIONS (2)
  - DRUG INTERACTION [None]
  - PROTHROMBIN TIME SHORTENED [None]
